FAERS Safety Report 5280623-0 (Version None)
Quarter: 2007Q1

REPORT INFORMATION
  Report Type: 
  Country: None (occurrence: None)
  Receive Date: 20070329
  Receipt Date: 20070320
  Transmission Date: 20070707
  Serious: Yes (Other)
  Sender: FDA-Public Use
  Company Number: 2007UW05551

PATIENT
  Age: 37 Year
  Sex: Female
  Weight: 63.5 kg

DRUGS (8)
  1. SEROQUEL [Suspect]
     Indication: BIPOLAR DISORDER
     Route: 048
     Dates: start: 20050101
  2. METFORMIN HCL [Concomitant]
  3. AVANDIA [Concomitant]
  4. THEOPHYLLINE [Concomitant]
  5. ACYCLOVIR [Concomitant]
  6. FELODIPINE [Concomitant]
  7. WELLBUTRIN [Concomitant]
  8. CITALOPRAM HYDROBROMIDE [Concomitant]

REACTIONS (10)
  - AMNESIA [None]
  - CONFUSIONAL STATE [None]
  - DISTURBANCE IN ATTENTION [None]
  - FEELING HOT [None]
  - HYPERHIDROSIS [None]
  - IMPAIRED DRIVING ABILITY [None]
  - LOSS OF CONSCIOUSNESS [None]
  - MEMORY IMPAIRMENT [None]
  - ROAD TRAFFIC ACCIDENT [None]
  - SEDATION [None]
